FAERS Safety Report 5658634-2 (Version None)
Quarter: 2008Q1

REPORT INFORMATION
  Report Type: 
  Country: None (occurrence: None)
  Receive Date: 20080310
  Receipt Date: 20070327
  Transmission Date: 20080703
  Serious: No
  Sender: FDA-Public Use
  Company Number: US-BAYER-200710937BCC

PATIENT
  Sex: Female

DRUGS (3)
  1. ALEVE [Suspect]
     Indication: ARTHRITIS
     Route: 048
  2. ACTONEL [Concomitant]
  3. FOSAMAX [Concomitant]

REACTIONS (1)
  - RESORPTION BONE INCREASED [None]
